FAERS Safety Report 15011180 (Version 3)
Quarter: 2018Q2

REPORT INFORMATION
  Report Type: Spontaneous
  Country: PL (occurrence: PL)
  Receive Date: 20180614
  Receipt Date: 20180629
  Transmission Date: 20180711
  Serious: Yes (Life-Threatening, Hospitalization, Other)
  Sender: FDA-Public Use
  Company Number: PL-CONCORDIA PHARMACEUTICALS INC.-GSH201806-001895

PATIENT
  Age: 78 Year
  Sex: Male

DRUGS (3)
  1. THEOPHYLLINE [Suspect]
     Active Substance: THEOPHYLLINE ANHYDROUS
     Indication: PRODUCT USED FOR UNKNOWN INDICATION
     Dosage: 30 TABLETS 150 MG (4.5 G) ; IN TOTAL
     Route: 065
  2. DIGOXIN. [Suspect]
     Active Substance: DIGOXIN
     Indication: PRODUCT USED FOR UNKNOWN INDICATION
     Dosage: (30 TABLETS) 0.25 MG (7.5 MG) ; IN TOTAL
     Route: 065
  3. ZOLPIDEM TABLET [Suspect]
     Active Substance: ZOLPIDEM\ZOLPIDEM TARTRATE
     Indication: PRODUCT USED FOR UNKNOWN INDICATION
     Dosage: 20 TABLETS 10 MG (200 MG) ; IN TOTAL
     Route: 065

REACTIONS (19)
  - Ventricular arrhythmia [Recovering/Resolving]
  - Normocytic anaemia [Recovering/Resolving]
  - Electrocardiogram abnormal [Unknown]
  - Ventricular extrasystoles [Recovered/Resolved]
  - Suicidal ideation [Recovering/Resolving]
  - Drug interaction [Unknown]
  - Laboratory test abnormal [Unknown]
  - Cardiac disorder [Unknown]
  - Toxicity to various agents [Recovered/Resolved]
  - Intentional overdose [Recovered/Resolved]
  - Toxicity to various agents [Recovering/Resolving]
  - Atrioventricular block first degree [Recovering/Resolving]
  - Electrocardiogram repolarisation abnormality [Unknown]
  - Myocardial infarction [Recovering/Resolving]
  - Conduction disorder [Recovering/Resolving]
  - Electrocardiogram ST segment depression [Recovered/Resolved]
  - Hypotension [Recovering/Resolving]
  - Nodal arrhythmia [Recovered/Resolved]
  - Suicide attempt [Recovered/Resolved]
